FAERS Safety Report 7438472-0 (Version None)
Quarter: 2011Q2

REPORT INFORMATION
  Report Type: 
  Country: None (occurrence: None)
  Receive Date: 20110426
  Receipt Date: 20110415
  Transmission Date: 20111010
  Serious: Yes (Other)
  Sender: FDA-Public Use
  Company Number: CHPA2011JP05595

PATIENT
  Age: 70 Year
  Sex: Male

DRUGS (4)
  1. PUSENNID [Suspect]
     Dosage: UNK, UNK
     Route: 048
  2. DRUG THERAPY NOS [Concomitant]
     Dosage: UNK, UNK
     Dates: end: 20110411
  3. GASTER [Concomitant]
     Dosage: UNK, UNK
     Route: 065
     Dates: end: 20110411
  4. GASMOTIN [Concomitant]
     Dosage: UNK, UNK
     Dates: end: 20110411

REACTIONS (2)
  - ASPARTATE AMINOTRANSFERASE INCREASED [None]
  - ALANINE AMINOTRANSFERASE INCREASED [None]
